FAERS Safety Report 16244858 (Version 2)
Quarter: 2019Q2

REPORT INFORMATION
  Report Type: Spontaneous
  Country: NL (occurrence: FR)
  Receive Date: 20190426
  Receipt Date: 20190430
  Transmission Date: 20190711
  Serious: Yes (Other)
  Sender: FDA-Public Use
  Company Number: FR-FRESENIUS KABI-FK201904249

PATIENT
  Age: 14 Day
  Sex: Female
  Weight: .5 kg

DRUGS (12)
  1. SODIUM CHLORIDE (MANUFACTURER UNKNOWN) [Suspect]
     Active Substance: SODIUM CHLORIDE
     Indication: PRODUCT USED FOR UNKNOWN INDICATION
     Dosage: 500 ML (BUT THE DOSE TAB WAS FILLED WITH 0.2ML)
     Route: 042
     Dates: start: 20190325, end: 20190325
  2. CYSTEINE/GLYCINE/ALANINE/SERINE/ASPARTIC ACID/LYSINE/TYROSINE/LEUCINE/METHIONINE/PHENYLALANINE/HISTI [Suspect]
     Active Substance: AMINO ACIDS
     Indication: PRODUCT USED FOR UNKNOWN INDICATION
     Dosage: 45 ML
     Route: 042
     Dates: start: 20190325, end: 20190325
  3. INSULIN [Suspect]
     Active Substance: INSULIN NOS
     Indication: HYPERGLYCAEMIA
     Dosage: 0.02 IU/KG/H
     Route: 042
     Dates: start: 20190314
  4. GLUCOSE (MANUFACTURER UNKNOWN) [Suspect]
     Active Substance: DEXTROSE
     Indication: PRODUCT USED FOR UNKNOWN INDICATION
     Dosage: 1000 ML (BUT THE DOSE TAB WAS FILLED WITH 26 ML)
     Route: 042
     Dates: start: 20190325, end: 20190325
  5. MAGNESIUM CHLORIDE. [Suspect]
     Active Substance: MAGNESIUM CHLORIDE
     Indication: PRODUCT USED FOR UNKNOWN INDICATION
     Dosage: 500 ML(DBUT THE DOSE TAB WAS FILLED WITH  0.3ML)
     Route: 042
     Dates: start: 20190325, end: 20190325
  6. POTASSIUM CHLORIDE (MANUFACTURER UNKNOWN) [Suspect]
     Active Substance: POTASSIUM CHLORIDE
     Indication: PRODUCT USED FOR UNKNOWN INDICATION
     Dosage: 500 ML (BUT THE DOSE TAB WAS FILLED WITH 2.5ML)
     Route: 042
     Dates: start: 20190325, end: 20190325
  7. SMOFLIPID [Suspect]
     Active Substance: FISH OIL\MEDIUM-CHAIN TRIGLYCERIDES\OLIVE OIL\SOYBEAN OIL
     Indication: PRODUCT USED FOR UNKNOWN INDICATION
     Dosage: 500 ML (BUT THE DOSE TAB WAS FILLED WITH  24ML)
     Route: 042
     Dates: start: 20190325, end: 20190325
  8. GLUCOSE 1-PHOSPHATE DISODIUM [Suspect]
     Active Substance: .ALPHA.-GLUCOSE-1-PHOSPHATE
     Indication: PRODUCT USED FOR UNKNOWN INDICATION
     Dosage: 100 ML (BUT THE DOSE TAB WAS FILLED WITH 6.2ML)
     Route: 042
     Dates: start: 20190325, end: 20190325
  9. CALCIUM GLUCONATE. [Suspect]
     Active Substance: CALCIUM GLUCONATE
     Indication: PRODUCT USED FOR UNKNOWN INDICATION
     Dosage: 10 ML (BUT THE DOSE TAB WAS FILLED WITH 6.8ML)
     Route: 042
     Dates: start: 20190325, end: 20190325
  10. VITALIPID INFANT [Suspect]
     Active Substance: ERGOCALCIFEROL\PHYTONADIONE\TOCOPHEROL\VITAMIN A PALMITATE
     Indication: PRODUCT USED FOR UNKNOWN INDICATION
     Dosage: 7ML
     Route: 042
     Dates: start: 20190325, end: 20190325
  11. ZINC. [Suspect]
     Active Substance: ZINC
     Indication: PRODUCT USED FOR UNKNOWN INDICATION
     Dosage: 10 ML (BUT THE DOSE TAB WAS FILLED WITH 0.4ML)
     Route: 042
     Dates: start: 20190325, end: 20190325
  12. SOLUVIT N [Suspect]
     Active Substance: VITAMINS
     Indication: PRODUCT USED FOR UNKNOWN INDICATION
     Dosage: 10 ML (BUT THE DOSE TAB WAS FILLED WITH 0.4 ML)
     Route: 042
     Dates: start: 20190325, end: 20190325

REACTIONS (1)
  - Hypoglycaemia [Unknown]

NARRATIVE: CASE EVENT DATE: 20190325
